FAERS Safety Report 14893047 (Version 4)
Quarter: 2018Q3

REPORT INFORMATION
  Report Type: Report from Study
  Country: AT (occurrence: AT)
  Receive Date: 20180514
  Receipt Date: 20180924
  Transmission Date: 20181010
  Serious: Yes (Hospitalization)
  Sender: FDA-Public Use
  Company Number: AT-TAKEDA-2018TUS016530

PATIENT
  Sex: Female

DRUGS (10)
  1. AMELIOR PLUS HCT [Concomitant]
     Dosage: UNK
  2. KALIORAL                           /00252502/ [Concomitant]
     Dosage: 8 UNK, UNK
  3. VEDOLIZUMAB [Suspect]
     Active Substance: VEDOLIZUMAB
     Indication: PRODUCT USED FOR UNKNOWN INDICATION
     Dosage: 300 MG, UNK
     Route: 042
     Dates: start: 20180328
  4. VALSARTAN. [Concomitant]
     Active Substance: VALSARTAN
     Dosage: 80 MG, UNK
  5. INH CIBA [Concomitant]
     Dosage: UNK MG, UNK
  6. METOPROLOL. [Concomitant]
     Active Substance: METOPROLOL
     Dosage: 50 MG, UNK
  7. THROMBO ASS [Concomitant]
     Active Substance: ASPIRIN
     Dosage: 100 MG, UNK
  8. MESAGRAN [Concomitant]
     Active Substance: MESALAMINE
     Dosage: 3000 MG, UNK
  9. TEMESTA                            /00273201/ [Concomitant]
     Active Substance: LORAZEPAM
     Dosage: 1 MG, UNK
  10. SALOFALK                           /00000301/ [Concomitant]
     Active Substance: MESALAMINE
     Dosage: 1000 MG, UNK

REACTIONS (4)
  - Chills [Recovered/Resolved]
  - Hospitalisation [Recovered/Resolved]
  - Pyrexia [Recovered/Resolved]
  - Rash [Recovered/Resolved]

NARRATIVE: CASE EVENT DATE: 20180411
